FAERS Safety Report 9780560 (Version 1)
Quarter: 2013Q4

REPORT INFORMATION
  Report Type: Spontaneous
  Country: DE (occurrence: DE)
  Receive Date: 20131224
  Receipt Date: 20131224
  Transmission Date: 20140711
  Serious: Yes (Disabling)
  Sender: FDA-Public Use
  Company Number: DE-AMGEN-DEUSP2013089814

PATIENT
  Sex: Female

DRUGS (3)
  1. ENBREL [Suspect]
     Indication: RHEUMATOID ARTHRITIS
     Dosage: 25 MG, 2X/WEEK
     Route: 058
     Dates: start: 20100526, end: 20131216
  2. LODOTRA [Concomitant]
     Dosage: 2 MG, UNK
  3. QUENSYL [Concomitant]
     Dosage: 400 MG, UNK

REACTIONS (1)
  - Cerebrovascular accident [Not Recovered/Not Resolved]
